FAERS Safety Report 12658510 (Version 1)
Quarter: 2016Q3

REPORT INFORMATION
  Report Type: Spontaneous
  Country: US (occurrence: None)
  Receive Date: 20160816
  Receipt Date: 20160816
  Transmission Date: 20161109
  Serious: Yes (Hospitalization)
  Sender: FDA-Public Use
  Company Number: None

PATIENT
  Age: 10 Year
  Sex: Female
  Weight: 34.02 kg

DRUGS (2)
  1. GERM-X [Suspect]
     Active Substance: ALCOHOL
     Route: 048
     Dates: start: 20160811, end: 20160811
  2. VYVANSE [Concomitant]
     Active Substance: LISDEXAMFETAMINE DIMESYLATE

REACTIONS (3)
  - Accidental exposure to product [None]
  - Blood alcohol increased [None]
  - Sneezing [None]

NARRATIVE: CASE EVENT DATE: 20160811
